FAERS Safety Report 9174328 (Version 1)
Quarter: 2013Q1

REPORT INFORMATION
  Report Type: Spontaneous
  Country: US (occurrence: None)
  Receive Date: 20130318
  Receipt Date: 20130318
  Transmission Date: 20140127
  Serious: Yes (Hospitalization)
  Sender: FDA-Public Use
  Company Number: None

PATIENT
  Sex: Male
  Weight: 57 kg

DRUGS (4)
  1. ACTEMRA [Suspect]
     Indication: TRANSPLANT REJECTION
     Route: 040
     Dates: start: 20130209
  2. ACTEMRA [Suspect]
     Indication: PROPHYLAXIS
     Route: 040
     Dates: start: 20130209
  3. PROGRAF 3MG [Concomitant]
  4. PREDNISONE 5MG [Concomitant]

REACTIONS (10)
  - Diarrhoea [None]
  - Dizziness [None]
  - Abdominal pain [None]
  - Procedural site reaction [None]
  - Swelling [None]
  - Enterocolitis infectious [None]
  - Large intestine perforation [None]
  - Bacteroides test positive [None]
  - Seroma [None]
  - Post procedural complication [None]
